FAERS Safety Report 14676011 (Version 1)
Quarter: 2018Q1

REPORT INFORMATION
  Report Type: Spontaneous
  Country: FI (occurrence: FI)
  Receive Date: 20180323
  Receipt Date: 20180323
  Transmission Date: 20180509
  Serious: Yes (Hospitalization)
  Sender: FDA-Public Use
  Company Number: FI-TEVA-2018-FI-869932

PATIENT
  Age: 40 Year
  Sex: Male

DRUGS (1)
  1. CIPROFLOXACIN. [Suspect]
     Active Substance: CIPROFLOXACIN
     Indication: PROSTATITIS
     Dosage: 1 GRAM DAILY;
     Route: 048

REACTIONS (21)
  - Peripheral coldness [Recovering/Resolving]
  - Diarrhoea [Recovering/Resolving]
  - Tendon pain [Recovering/Resolving]
  - Hypoaesthesia [Recovering/Resolving]
  - Muscle twitching [Recovering/Resolving]
  - Paraesthesia [Recovering/Resolving]
  - Burning sensation [Recovering/Resolving]
  - Abdominal pain [Recovering/Resolving]
  - Tendonitis [Recovering/Resolving]
  - Dyspnoea [Recovering/Resolving]
  - Anxiety [Recovering/Resolving]
  - Pain in extremity [Recovering/Resolving]
  - Erythema [Recovering/Resolving]
  - Ecchymosis [Recovering/Resolving]
  - Neuralgia [Recovering/Resolving]
  - Palpitations [Recovering/Resolving]
  - Gait disturbance [Recovering/Resolving]
  - Insomnia [Recovering/Resolving]
  - Facial neuralgia [Recovering/Resolving]
  - Arthralgia [Recovering/Resolving]
  - Back pain [Recovering/Resolving]
